FAERS Safety Report 12494454 (Version 5)
Quarter: 2019Q3

REPORT INFORMATION
  Report Type: Spontaneous
  Country: FI (occurrence: FI)
  Receive Date: 20160623
  Receipt Date: 20190805
  Transmission Date: 20191004
  Serious: Yes (Life-Threatening, Hospitalization, Other)
  Sender: FDA-Public Use
  Company Number: FI-FRI-1000085436

PATIENT
  Sex: Male

DRUGS (24)
  1. TEMESTA [LORAZEPAM] [Suspect]
     Active Substance: LORAZEPAM
     Indication: ANXIETY
     Dosage: 7 MG, SINGLE
     Route: 065
     Dates: start: 201605, end: 201605
  2. LAPENAX [Suspect]
     Active Substance: CLOZAPINE
     Indication: SCHIZOPHRENIA
     Dosage: 2100 MG, SINGLE
     Route: 065
     Dates: start: 201605, end: 201605
  3. LAPENAX [Suspect]
     Active Substance: CLOZAPINE
     Dosage: 300 MG, QD
     Route: 065
     Dates: start: 2002
  4. BISOPROACT [Concomitant]
     Active Substance: BISOPROLOL
     Dosage: UNK
  5. FLIXOTIDE JUNIOR EVOHALER [Concomitant]
     Dosage: UNK
  6. LAPENAX [Suspect]
     Active Substance: CLOZAPINE
     Dosage: UNK
     Route: 065
     Dates: start: 20180710, end: 20180712
  7. CITALOPRAM HYDROBROMIDE - BP [Suspect]
     Active Substance: CITALOPRAM HYDROBROMIDE
     Indication: OBSESSIVE-COMPULSIVE DISORDER
     Dosage: 560 MG, SINGLE
     Route: 065
     Dates: start: 201605, end: 201605
  8. TEMESTA [LORAZEPAM] [Suspect]
     Active Substance: LORAZEPAM
     Dosage: 0.5 MG, TID
     Route: 065
     Dates: start: 2007
  9. LAPENAX [Suspect]
     Active Substance: CLOZAPINE
     Dosage: UNK UNK, UNKNOWN
     Route: 065
     Dates: start: 201608
  10. LAPENAX [Suspect]
     Active Substance: CLOZAPINE
     Dosage: 300 MG, UNKNOWN
     Route: 065
     Dates: start: 2006
  11. VANCOMYCIN [Suspect]
     Active Substance: VANCOMYCIN
     Indication: INFECTION
     Dosage: UNK UNK, UNKNOWN
     Route: 065
  12. LYRICA [Concomitant]
     Active Substance: PREGABALIN
     Dosage: UNK
  13. ZYVOXID [Concomitant]
     Active Substance: LINEZOLID
     Dosage: UNK, UNKNOWN
  14. CITALOPRAM HYDROBROMIDE - BP [Suspect]
     Active Substance: CITALOPRAM HYDROBROMIDE
     Dosage: 20 MG, QD
     Route: 065
     Dates: start: 2006
  15. TEMESTA [LORAZEPAM] [Suspect]
     Active Substance: LORAZEPAM
     Dosage: 1 MG, QD
     Route: 065
  16. LAPENAX [Suspect]
     Active Substance: CLOZAPINE
     Indication: SCHIZOAFFECTIVE DISORDER
     Dosage: 300 MG, QD
     Route: 065
     Dates: start: 20180717, end: 20180719
  17. VANCOMYCIN [Suspect]
     Active Substance: VANCOMYCIN
     Indication: WOUND INFECTION
     Dosage: UNK UNK, UNKNOWN
     Route: 065
     Dates: start: 20180621, end: 20180712
  18. CITALOPRAM HYDROBROMIDE - BP [Suspect]
     Active Substance: CITALOPRAM HYDROBROMIDE
     Dosage: 80 MG, QD
     Route: 065
  19. MAGNESIUM [Concomitant]
     Active Substance: MAGNESIUM
     Dosage: UNK
  20. KLEXANE [Concomitant]
     Active Substance: ENOXAPARIN
     Dosage: UNK
  21. PRIMASPAN [Concomitant]
     Active Substance: ASPIRIN
     Dosage: UNK
  22. ANAFRANIL [Concomitant]
     Active Substance: CLOMIPRAMINE HYDROCHLORIDE
     Dosage: UNK
  23. KALISOL [Concomitant]
     Dosage: UNK
  24. OLANZAPIN ORION [Concomitant]
     Active Substance: OLANZAPINE
     Dosage: UNK

REACTIONS (16)
  - Intentional overdose [Unknown]
  - Renal injury [Recovered/Resolved]
  - Mental impairment [Not Recovered/Not Resolved]
  - Loss of consciousness [Unknown]
  - Confusional state [Recovering/Resolving]
  - Blood creatinine increased [Not Recovered/Not Resolved]
  - Off label use [Unknown]
  - Rhabdomyolysis [Recovered/Resolved]
  - Wound infection bacterial [Recovered/Resolved]
  - Neutropenia [Recovered/Resolved]
  - Suicide attempt [Recovered/Resolved]
  - Anuria [Recovered/Resolved]
  - Incoherent [Unknown]
  - Tangentiality [Unknown]
  - Multiple fractures [Unknown]
  - Suicidal behaviour [Recovered/Resolved]

NARRATIVE: CASE EVENT DATE: 2007
